FAERS Safety Report 9640862 (Version 1)
Quarter: 2013Q4

REPORT INFORMATION
  Report Type: Spontaneous
  Country: US (occurrence: US)
  Receive Date: 20131023
  Receipt Date: 20131023
  Transmission Date: 20140711
  Serious: No
  Sender: FDA-Public Use
  Company Number: US-ABBVIE-13P-163-1120613-00

PATIENT
  Sex: Female
  Weight: 101.7 kg

DRUGS (3)
  1. LUPRON DEPOT [Suspect]
     Indication: ENDOMETRIOSIS
     Route: 030
     Dates: start: 201207, end: 201301
  2. LUPRON DEPOT [Suspect]
     Route: 030
     Dates: start: 20101210, end: 201107
  3. VENTOLIN [Concomitant]
     Indication: ASTHMA

REACTIONS (6)
  - Dysmenorrhoea [Not Recovered/Not Resolved]
  - Dysmenorrhoea [Recovered/Resolved]
  - Dyspareunia [Not Recovered/Not Resolved]
  - Dyspareunia [Recovered/Resolved]
  - Endometriosis [Not Recovered/Not Resolved]
  - Endometriosis [Recovered/Resolved]
